FAERS Safety Report 10212022 (Version 2)
Quarter: 2014Q2

REPORT INFORMATION
  Report Type: Spontaneous
  Country: US (occurrence: US)
  Receive Date: 20140602
  Receipt Date: 20140602
  Transmission Date: 20141212
  Serious: Yes (Other)
  Sender: FDA-Public Use
  Company Number: US-AMGEN-USASP2014031283

PATIENT
  Age: 60 Year
  Sex: Female
  Weight: 89.34 kg

DRUGS (12)
  1. ENBREL [Suspect]
     Indication: RHEUMATOID ARTHRITIS
     Dosage: 50 MG, QWK
     Route: 058
     Dates: start: 20140307
  2. ENBREL [Suspect]
     Indication: PSORIASIS
  3. MTX                                /00113801/ [Concomitant]
     Indication: RHEUMATOID ARTHRITIS
     Dosage: 10 MG, QWK
     Route: 048
     Dates: start: 2008
  4. FOLIC ACID [Concomitant]
     Indication: PROPHYLAXIS
     Dosage: 1 MG, QD
     Route: 048
     Dates: start: 2008
  5. TYLENOL W/CODEINE [Concomitant]
     Indication: RHEUMATOID ARTHRITIS
     Dosage: UNK, 2 TABLETS QD
     Route: 048
     Dates: start: 201308
  6. CELEBREX [Concomitant]
     Indication: RHEUMATOID ARTHRITIS
     Dosage: 200 MG, BID
     Route: 048
     Dates: start: 2001
  7. SYNTHROID [Concomitant]
     Indication: HYPOTHYROIDISM
     Dosage: UNK
     Route: 048
  8. GABAPENTIN [Concomitant]
     Dosage: 300 MG, 1 BID
  9. PROZAC [Concomitant]
     Dosage: 20 MG,  2 QD
  10. OXYBUTIN [Concomitant]
     Dosage: 2.5 MG, 2 QD
  11. AMBIEN [Concomitant]
     Dosage: UNK, AS NECESSARY
  12. CALCIUM + VIT D [Concomitant]
     Dosage: UNK

REACTIONS (10)
  - Urinary tract infection [Not Recovered/Not Resolved]
  - Diarrhoea [Not Recovered/Not Resolved]
  - Throat tightness [Recovered/Resolved]
  - Eczema [Not Recovered/Not Resolved]
  - Injection site reaction [Recovering/Resolving]
  - Injection site urticaria [Recovering/Resolving]
  - Injection site erythema [Unknown]
  - Injection site pruritus [Recovered/Resolved]
  - Injection site rash [Recovered/Resolved]
  - Psoriasis [Not Recovered/Not Resolved]
